FAERS Safety Report 7628302-6 (Version None)
Quarter: 2011Q3

REPORT INFORMATION
  Report Type: 
  Country: None (occurrence: None)
  Receive Date: 20110714
  Receipt Date: 20110630
  Transmission Date: 20111222
  Serious: Yes (Hospitalization, Other)
  Sender: FDA-Public Use
  Company Number: DSJ-2011-13537

PATIENT
  Age: 62 Year
  Sex: Female

DRUGS (10)
  1. ENALAPRIL MALEATE [Concomitant]
  2. DIOSMIN/HESPERIDIN [Concomitant]
  3. VITAMIN B1 TAB [Concomitant]
  4. BENICAR [Suspect]
     Indication: HYPERTENSION
     Dosage: 20 MG (20 MG, 1 IN 1 D), PER ORAL;
     Dates: start: 20090101
  5. ALLOPURINOL [Concomitant]
  6. ATORVASTATIN [Concomitant]
  7. CITALOPRAM HYDROBROMIDE [Concomitant]
  8. ISOSORBIDE DINITRATE [Concomitant]
  9. NIMESULIDE/BETA-CYCLODEXTRIN (NIMESULIDE BETA-CYCLODEXTRINE) [Concomitant]
  10. HYDROCHLOROTHIAZIDE [Concomitant]

REACTIONS (5)
  - PHARYNGITIS [None]
  - HYPOTENSION [None]
  - DRUG INEFFECTIVE [None]
  - FINGER AMPUTATION [None]
  - INFLUENZA [None]
